FAERS Safety Report 16847653 (Version 1)
Quarter: 2019Q3

REPORT INFORMATION
  Report Type: Other
  Country: None (occurrence: US)
  Receive Date: 20190924
  Receipt Date: 20190924
  Transmission Date: 20191005
  Serious: No
  Sender: FDA-Public Use
  Company Number: US-ACORDA-ACO_159835_2019

PATIENT
  Sex: Female

DRUGS (1)
  1. INBRIJA [Suspect]
     Active Substance: LEVODOPA
     Indication: PARKINSON^S DISEASE
     Dosage: 84 MG (2 CAPSULES OF 42 MG) UP TO 5 TIMES PER DAY AS NEEDED
     Dates: start: 20190701, end: 20190704

REACTIONS (2)
  - Sinus headache [Unknown]
  - Device issue [Unknown]
